FAERS Safety Report 19142509 (Version 3)
Quarter: 2022Q3

REPORT INFORMATION
  Report Type: Spontaneous
  Country: US (occurrence: US)
  Receive Date: 20210416
  Receipt Date: 20220711
  Transmission Date: 20221027
  Serious: No
  Sender: FDA-Public Use
  Company Number: US-GSKCCFUS-CASE-01026897_AE-60918

PATIENT
  Sex: Male

DRUGS (3)
  1. NUCALA [Suspect]
     Active Substance: MEPOLIZUMAB
     Indication: Product used for unknown indication
     Dosage: UNK
  2. NUCALA [Suspect]
     Active Substance: MEPOLIZUMAB
     Indication: Product used for unknown indication
     Dosage: 100 MG/ML
     Route: 058
  3. NUCALA [Suspect]
     Active Substance: MEPOLIZUMAB

REACTIONS (7)
  - Exposure via skin contact [Unknown]
  - Device leakage [Unknown]
  - Product quality issue [Unknown]
  - Accidental exposure to product [Unknown]
  - Wrong technique in product usage process [Unknown]
  - Accidental underdose [Unknown]
  - Product complaint [Unknown]
